FAERS Safety Report 19499143 (Version 6)
Quarter: 2021Q3

REPORT INFORMATION
  Report Type: Report from Study
  Country: AR (occurrence: AR)
  Receive Date: 20210706
  Receipt Date: 20210917
  Transmission Date: 20211014
  Serious: Yes (Hospitalization, Other)
  Sender: FDA-Public Use
  Company Number: NVSC2021AR150384

PATIENT
  Age: 59 Year
  Sex: Male

DRUGS (3)
  1. METHOTREXATE. [Concomitant]
     Active Substance: METHOTREXATE
     Dosage: 20 MG, QW
     Route: 065
     Dates: start: 202105, end: 202106
  2. COSENTYX [Suspect]
     Active Substance: SECUKINUMAB
     Indication: PSORIATIC ARTHROPATHY
     Dosage: 300 MG, QMO
     Route: 058
     Dates: start: 20180201, end: 20210604
  3. METHOTREXATE. [Concomitant]
     Active Substance: METHOTREXATE
     Indication: PRODUCT USED FOR UNKNOWN INDICATION
     Dosage: 15 MG, QW (3 YEARS AGO)
     Route: 065

REACTIONS (8)
  - Renal neoplasm [Unknown]
  - Haemorrhage [Unknown]
  - Pain [Unknown]
  - Metastasis [Unknown]
  - Haematuria [Recovering/Resolving]
  - Renal colic [Recovered/Resolved]
  - Pulmonary mass [Unknown]
  - Renal disorder [Unknown]

NARRATIVE: CASE EVENT DATE: 20210621
